FAERS Safety Report 5327879-3 (Version None)
Quarter: 2007Q2

REPORT INFORMATION
  Report Type: 
  Country: None (occurrence: None)
  Receive Date: 20070517
  Receipt Date: 20070507
  Transmission Date: 20071010
  Serious: Yes (Death, Other)
  Sender: FDA-Public Use
  Company Number: US-PFIZER INC-2004071261

PATIENT
  Age: 45 Year

DRUGS (4)
  1. PHENELZINE SULFATE [Suspect]
  2. HALOPERIDOL [Suspect]
     Route: 048
  3. QUETIAPINE FUMARATE [Suspect]
     Route: 048
  4. ALL OTHER THERAPEUTIC PRODUCTS [Suspect]

REACTIONS (3)
  - CARDIAC ARREST [None]
  - COMPLETED SUICIDE [None]
  - RESPIRATORY ARREST [None]
